FAERS Safety Report 11789284 (Version 1)
Quarter: 2015Q4

REPORT INFORMATION
  Report Type: Spontaneous
  Country: US (occurrence: US)
  Receive Date: 20151201
  Receipt Date: 20151201
  Transmission Date: 20160305
  Serious: No
  Sender: FDA-Public Use
  Company Number: US-FRI-1000078400

PATIENT
  Sex: Male

DRUGS (1)
  1. NAMENDA [Suspect]
     Active Substance: MEMANTINE HYDROCHLORIDE

REACTIONS (5)
  - Clumsiness [Unknown]
  - Abnormal behaviour [Unknown]
  - Impaired driving ability [Unknown]
  - Autonomic nervous system imbalance [Unknown]
  - Disorientation [Unknown]
